FAERS Safety Report 9786403 (Version 1)
Quarter: 2013Q4

REPORT INFORMATION
  Report Type: Spontaneous
  Country: AR (occurrence: None)
  Receive Date: 20131224
  Receipt Date: 20131224
  Transmission Date: 20140711
  Serious: Yes (Other)
  Sender: FDA-Public Use
  Company Number: VAL_02870_2013

PATIENT
  Sex: Female

DRUGS (2)
  1. METHYLERGOMETRINE MALEATE [Suspect]
     Indication: HAEMORRHAGE
     Dosage: 2 DF DAILY ORAL, (TOOK SOME REMAINING PILLS ORAL)
     Route: 048
     Dates: start: 201309, end: 201310
  2. ORAL CONTRACEPTIVE NOS [Concomitant]

REACTIONS (3)
  - Haemorrhage [None]
  - Haemorrhage urinary tract [None]
  - General physical health deterioration [None]
